FAERS Safety Report 8044335-2 (Version None)
Quarter: 2012Q1

REPORT INFORMATION
  Report Type: 
  Country: None (occurrence: None)
  Receive Date: 20120113
  Receipt Date: 20120105
  Transmission Date: 20120608
  Serious: Yes (Death)
  Sender: FDA-Public Use
  Company Number: JP-SANOFI-AVENTIS-2011SA003726

PATIENT
  Age: 77 Year
  Sex: Male
  Weight: 58 kg

DRUGS (20)
  1. FLUOROURACIL [Suspect]
     Route: 040
     Dates: start: 20100316, end: 20100316
  2. FLUOROURACIL [Suspect]
     Dosage: INFUSION
     Dates: start: 20100330, end: 20100330
  3. OXALIPLATIN [Suspect]
     Dosage: INFUSION
     Dates: start: 20100330, end: 20100330
  4. OXYCONTIN [Concomitant]
     Indication: CANCER PAIN
     Route: 048
     Dates: start: 20100309, end: 20100421
  5. ZANTAC [Concomitant]
     Indication: GASTRIC ULCER
     Route: 048
     Dates: start: 20100324, end: 20100401
  6. NOVAMIN [Concomitant]
     Indication: NAUSEA
     Route: 048
     Dates: start: 20100324, end: 20100401
  7. FLUOROURACIL [Suspect]
     Route: 040
     Dates: start: 20100330, end: 20100330
  8. OXALIPLATIN [Suspect]
     Dosage: 85 MG/M2
     Route: 041
     Dates: start: 20100316, end: 20100316
  9. NAPROXEN [Concomitant]
     Indication: PAIN
     Route: 048
     Dates: start: 20100324, end: 20100401
  10. MAGNESIUM OXIDE [Concomitant]
     Indication: CONSTIPATION
     Route: 048
     Dates: start: 20100324, end: 20100401
  11. SCOPOLAMINE [Concomitant]
     Route: 048
     Dates: start: 20100324
  12. FLUOROURACIL [Suspect]
     Dosage: INFUSION
     Dates: start: 20100316, end: 20100316
  13. ORGADRONE [Concomitant]
     Indication: PREMEDICATION
     Route: 041
     Dates: start: 20100316, end: 20100330
  14. FLUTICASONE PROPIONATE [Concomitant]
     Indication: ASTHMA
  15. GRANISETRON [Concomitant]
     Indication: PREMEDICATION
     Route: 041
     Dates: start: 20100316, end: 20100330
  16. LEVOLEUCOVORIN CALCIUM [Suspect]
     Route: 041
     Dates: end: 20100330
  17. LOXOPROFEN SODIUM [Concomitant]
     Route: 048
     Dates: start: 20100324
  18. ANYRUME S [Concomitant]
     Route: 048
     Dates: start: 20100228
  19. LEVOLEUCOVORIN CALCIUM [Suspect]
     Route: 041
     Dates: start: 20100316
  20. CLOSTRIDIUM BUTYRICUM [Concomitant]
     Indication: ENTEROCOLITIS
     Route: 048
     Dates: start: 20100324, end: 20100401

REACTIONS (5)
  - WHITE BLOOD CELL COUNT DECREASED [None]
  - LARGE INTESTINE PERFORATION [None]
  - INTESTINAL FISTULA [None]
  - PLATELET COUNT DECREASED [None]
  - NEUTROPHIL COUNT DECREASED [None]
